FAERS Safety Report 8243776 (Version 2)
Quarter: 2012Q4

REPORT INFORMATION
  Report Type: Report from Study
  Country: JP (occurrence: JP)
  Receive Date: 20111114
  Receipt Date: 20121015
  Transmission Date: 20130627
  Serious: Yes (Hospitalization)
  Sender: FDA-Public Use
  Company Number: JP-PFIZER INC-2011267677

PATIENT
  Age: 65 Year
  Sex: Male
  Weight: 54.8 kg

DRUGS (21)
  1. ADRIACIN [Suspect]
     Indication: ADULT T-CELL LYMPHOMA/LEUKAEMIA
     Dosage: 40 mg/m2, 1/4 weeks
     Route: 041
     Dates: start: 20110131, end: 201107
  2. METHOTREXATE SODIUM [Suspect]
     Indication: ADULT T-CELL LYMPHOMA/LEUKAEMIA
     Dosage: 15 mg, 1/8 week
     Route: 037
     Dates: start: 20110308, end: 20110523
  3. DIFLUCAN [Suspect]
     Indication: INFECTION PROPHYLAXIS
     Dosage: 200 mg, 1x/day
     Route: 048
     Dates: start: 20110501, end: 20111001
  4. ONCOVIN [Suspect]
     Indication: ADULT T-CELL LYMPHOMA/LEUKAEMIA
     Dosage: 1 mg/m2, 1/4 week
     Route: 041
     Dates: start: 20110131, end: 20110702
  5. ENDOXAN [Suspect]
     Indication: ADULT T-CELL LYMPHOMA/LEUKAEMIA
     Dosage: 350 mg/m2, 1/4 week
     Route: 041
     Dates: start: 20110131, end: 20110702
  6. PREDONINE [Suspect]
     Indication: ADULT T-CELL LYMPHOMA/LEUKAEMIA
     Dosage: 40 mg/m2, 1/4 week
     Route: 048
     Dates: start: 20110131, end: 20110718
  7. PREDONINE [Suspect]
     Dosage: 10 mg, 1/8 week
     Route: 037
     Dates: start: 20110308
  8. CYMERIN [Suspect]
     Indication: ADULT T-CELL LYMPHOMA/LEUKAEMIA
     Dosage: 60 mg/m2, 1/4 week
     Route: 041
     Dates: start: 20110207, end: 201107
  9. FILDESIN [Suspect]
     Indication: ADULT T-CELL LYMPHOMA/LEUKAEMIA
     Dosage: 2.4 mg/m2, 1/4 week
     Route: 041
     Dates: start: 20110216, end: 20110716
  10. ETOPOSIDE [Suspect]
     Indication: ADULT T-CELL LYMPHOMA/LEUKAEMIA
     Dosage: 100 mg/m2, 1/4 week
     Route: 041
     Dates: start: 20110216, end: 20110718
  11. CARBOPLATIN [Suspect]
     Indication: ADULT T-CELL LYMPHOMA/LEUKAEMIA
     Dosage: 250 mg/m2, 1/4 week
     Route: 041
     Dates: start: 20110216, end: 20110716
  12. CYTARABINE [Suspect]
     Indication: ADULT T-CELL LYMPHOMA/LEUKAEMIA
     Dosage: 40 mg, UNK
     Route: 037
     Dates: start: 20110308, end: 20110523
  13. LOXONIN [Suspect]
     Indication: BACK PAIN
     Dosage: 60 mg, UNK
     Route: 048
  14. MOHRUS [Suspect]
     Indication: BACK PAIN
     Dosage: 40 mg, UNK
     Route: 061
  15. PROTECADIN [Suspect]
     Indication: GASTRIC MUCOSAL LESION
     Dosage: 10 mg, 2x/day
     Route: 048
  16. ISCOTIN [Suspect]
     Indication: ANTIBIOTIC PROPHYLAXIS
     Dosage: 300 mg, 1x/day
     Route: 048
     Dates: start: 20110131
  17. BAKTAR [Suspect]
     Indication: PNEUMOCYSTIS JIROVECI PNEUMONIA
     Dosage: 1 g, 1x/day
     Route: 048
     Dates: start: 20110131
  18. RIBALL [Suspect]
     Indication: TUMOUR LYSIS SYNDROME
     Dosage: 100 mg, 3x/day
     Route: 048
     Dates: start: 20110206, end: 20111001
  19. OMEPRAZOLE [Suspect]
     Indication: GASTRIC MUCOSAL LESION
     Dosage: 20 mg, 1x/day
     Route: 048
     Dates: start: 20110403, end: 20110912
  20. UBIDECARENONE [Suspect]
     Indication: CARDIOTOXICITY
     Dosage: 10 mg, 3x/day
     Route: 048
     Dates: start: 20110702, end: 20110902
  21. LAC-B [Suspect]
     Indication: CARDIOTOXICITY
     Dosage: 1 g, 3x/day
     Route: 048
     Dates: start: 20110702, end: 20111001

REACTIONS (2)
  - Second primary malignancy [Not Recovered/Not Resolved]
  - Myelodysplastic syndrome [Not Recovered/Not Resolved]
